FAERS Safety Report 15980754 (Version 1)
Quarter: 2019Q1

REPORT INFORMATION
  Report Type: Spontaneous
  Country: NL (occurrence: NL)
  Receive Date: 20190219
  Receipt Date: 20190219
  Transmission Date: 20190418
  Serious: Yes (Death)
  Sender: FDA-Public Use
  Company Number: NL-IMPAX LABORATORIES, LLC-2019-IPXL-00512

PATIENT

DRUGS (4)
  1. URSODIOL. [Suspect]
     Active Substance: URSODIOL
     Indication: VENOOCCLUSIVE LIVER DISEASE
     Dosage: 300 MILLIGRAM, 2 /DAY
     Route: 048
  2. HEPARIN [Suspect]
     Active Substance: HEPARIN SODIUM
     Indication: VENOOCCLUSIVE LIVER DISEASE
     Dosage: UNK, CONTINUOUS INFUSION, 100 UNITS/KG/DAY
     Route: 065
  3. GLUTAMINE [Suspect]
     Active Substance: GLUTAMINE
     Indication: VENOOCCLUSIVE LIVER DISEASE
     Dosage: 15 GRAM, IN TWO DIVIDED DOSES
     Route: 065
  4. INOTUZUMAB OZOGAMICIN [Suspect]
     Active Substance: INOTUZUMAB OZOGAMICIN
     Indication: VENOOCCLUSIVE LIVER DISEASE
     Dosage: UNK
     Route: 065

REACTIONS (4)
  - Venoocclusive disease [Fatal]
  - Blood bilirubin increased [Unknown]
  - Weight increased [Unknown]
  - Ascites [Unknown]
